FAERS Safety Report 20054074 (Version 1)
Quarter: 2021Q4

REPORT INFORMATION
  Report Type: Spontaneous
  Country: US (occurrence: None)
  Receive Date: 20211110
  Receipt Date: 20211110
  Transmission Date: 20220303
  Serious: Yes (Other)
  Sender: FDA-Public Use
  Company Number: None

PATIENT
  Age: 52 Year
  Sex: Female
  Weight: 106.65 kg

DRUGS (1)
  1. CONTRAVE [Suspect]
     Active Substance: BUPROPION HYDROCHLORIDE\NALTREXONE HYDROCHLORIDE
     Indication: Weight decreased
     Dates: start: 20210801, end: 20211110

REACTIONS (7)
  - Dizziness [None]
  - Vomiting [None]
  - Diarrhoea [None]
  - Bedridden [None]
  - Hand-eye coordination impaired [None]
  - Fear [None]
  - Migraine [None]

NARRATIVE: CASE EVENT DATE: 20211108
